FAERS Safety Report 17246513 (Version 1)
Quarter: 2020Q1

REPORT INFORMATION
  Report Type: Spontaneous
  Country: US (occurrence: US)
  Receive Date: 20200107
  Receipt Date: 20200107
  Transmission Date: 20200409
  Serious: Yes (Life-Threatening, Disabling)
  Sender: FDA-Public Use
  Company Number: None

PATIENT
  Age: 50 Year
  Sex: Female
  Weight: 94.5 kg

DRUGS (1)
  1. GENERIC LEVAQUIN [Suspect]
     Active Substance: LEVOFLOXACIN
     Indication: PNEUMONIA

REACTIONS (4)
  - Nervous system disorder [None]
  - Muscle twitching [None]
  - Tendon rupture [None]
  - Cerebral disorder [None]

NARRATIVE: CASE EVENT DATE: 20160404
